FAERS Safety Report 4455002-6 (Version None)
Quarter: 2004Q3

REPORT INFORMATION
  Report Type: 
  Country: None (occurrence: None)
  Receive Date: 20040921
  Receipt Date: 20040914
  Transmission Date: 20050211
  Serious: Yes (Other)
  Sender: FDA-Public Use
  Company Number: PHBS2004CA12214

PATIENT
  Sex: Female

DRUGS (2)
  1. MELLARIL [Suspect]
     Indication: PSYCHOMOTOR HYPERACTIVITY
     Route: 048
     Dates: start: 19730101, end: 19850101
  2. MELLARIL [Suspect]
     Route: 048
     Dates: start: 19730101, end: 19850101

REACTIONS (4)
  - AFFECTIVE DISORDER [None]
  - MUSCLE TWITCHING [None]
  - TARDIVE DYSKINESIA [None]
  - TIC [None]
